FAERS Safety Report 13226477 (Version 1)
Quarter: 2017Q1

REPORT INFORMATION
  Report Type: Spontaneous
  Country: US (occurrence: US)
  Receive Date: 20170213
  Receipt Date: 20170213
  Transmission Date: 20170428
  Serious: No
  Sender: FDA-Public Use
  Company Number: US-VANDA PHARMACEUTICALS, INC-2016TASUS001453

PATIENT
  Sex: Female

DRUGS (1)
  1. HETLIOZ [Suspect]
     Active Substance: TASIMELTEON
     Indication: PRODUCT USED FOR UNKNOWN INDICATION
     Dosage: 20 MG, Q24H 1 HOUR PRIOR TO BED
     Route: 048
     Dates: start: 201604

REACTIONS (4)
  - Oropharyngeal discomfort [Unknown]
  - Insomnia [Unknown]
  - Amnesia [Unknown]
  - Disturbance in attention [Unknown]
